FAERS Safety Report 10906700 (Version 1)
Quarter: 2015Q1

REPORT INFORMATION
  Report Type: Spontaneous
  Country: None (occurrence: None)
  Receive Date: 20150309
  Receipt Date: 20150309
  Transmission Date: 20150721
  Serious: Yes (Disabling)
  Sender: FDA-Public Use
  Company Number: None

PATIENT
  Age: 65 Year
  Sex: Female
  Weight: 58.97 kg

DRUGS (10)
  1. QVAR [Concomitant]
     Active Substance: BECLOMETHASONE DIPROPIONATE
  2. STRONTIUM D [Concomitant]
  3. STRONTIUM K [Concomitant]
  4. VENTOLIN [Concomitant]
     Active Substance: ALBUTEROL SULFATE
  5. ZOLPIDEM [Concomitant]
     Active Substance: ZOLPIDEM\ZOLPIDEM TARTRATE
  6. CALCIUM [Concomitant]
     Active Substance: CALCIUM
  7. CIPROFLOXACIN HCL 500MG [Suspect]
     Active Substance: CIPROFLOXACIN HYDROCHLORIDE
     Indication: URINARY TRACT INFECTION
     Dosage: 1 TABLET
     Route: 048
     Dates: start: 20150216, end: 20150218
  8. LEVOTHYROXIN [Concomitant]
     Active Substance: LEVOTHYROXINE
  9. LUTEIN [Concomitant]
     Active Substance: LUTEIN
  10. EPA FISH OIL [Concomitant]

REACTIONS (10)
  - Vitreous floaters [None]
  - Back pain [None]
  - Stress [None]
  - Malaise [None]
  - Vision blurred [None]
  - Hypoaesthesia [None]
  - Visual impairment [None]
  - Mass [None]
  - Urinary tract disorder [None]
  - Discomfort [None]

NARRATIVE: CASE EVENT DATE: 20150216
